FAERS Safety Report 19854928 (Version 3)
Quarter: 2022Q2

REPORT INFORMATION
  Report Type: Spontaneous
  Country: AU (occurrence: AU)
  Receive Date: 20210920
  Receipt Date: 20220627
  Transmission Date: 20220720
  Serious: Yes (Hospitalization)
  Sender: FDA-Public Use
  Company Number: AU-GLAXOSMITHKLINE-AU2021APC194393

PATIENT

DRUGS (3)
  1. VENTOLIN [Suspect]
     Active Substance: ALBUTEROL SULFATE
     Indication: Asthma
     Dosage: 2 PUFF(S) PRN (AS NEEDED)
     Route: 055
     Dates: start: 1968
  2. BECLOMETHASONE DIPROPIONATE [Suspect]
     Active Substance: BECLOMETHASONE DIPROPIONATE
     Indication: Asthma prophylaxis
     Dosage: UNK
     Route: 055
  3. INTAL [Suspect]
     Active Substance: CROMOLYN SODIUM
     Indication: Asthma prophylaxis
     Dosage: UNK
     Route: 055

REACTIONS (3)
  - Asthma [Recovered/Resolved]
  - Cyanosis [Recovered/Resolved]
  - Dyspnoea [Recovered/Resolved]
